FAERS Safety Report 9400001 (Version 1)
Quarter: 2013Q3

REPORT INFORMATION
  Report Type: Spontaneous
  Country: US (occurrence: US)
  Receive Date: 20130715
  Receipt Date: 20130715
  Transmission Date: 20140515
  Serious: No
  Sender: FDA-Public Use
  Company Number: US-BAYER-2013-085158

PATIENT
  Sex: 0

DRUGS (5)
  1. ALEVE CAPLET [Suspect]
     Indication: MIGRAINE
  2. ALEVE CAPLET [Suspect]
     Indication: PYREXIA
  3. ALEVE CAPLET [Suspect]
     Indication: PAIN
  4. ALEVE CAPLET [Suspect]
     Indication: EAR PAIN
  5. TYLENOL [PARACETAMOL] [Concomitant]
     Dosage: UNK

REACTIONS (1)
  - Drug ineffective [None]
